FAERS Safety Report 7423238-8 (Version None)
Quarter: 2011Q2

REPORT INFORMATION
  Report Type: 
  Country: None (occurrence: None)
  Receive Date: 20110419
  Receipt Date: 20091216
  Transmission Date: 20111010
  Serious: No
  Sender: FDA-Public Use
  Company Number: US-BAYER-200943758NA

PATIENT
  Age: 38 Year
  Sex: Female

DRUGS (3)
  1. YAZ [Suspect]
     Route: 048
  2. ASPIRIN [Concomitant]
     Indication: PAIN
  3. LYRICA [Concomitant]

REACTIONS (3)
  - PARAESTHESIA [None]
  - MIGRAINE [None]
  - UTERINE LEIOMYOMA [None]
